FAERS Safety Report 7230760-6 (Version None)
Quarter: 2011Q1

REPORT INFORMATION
  Report Type: 
  Country: None (occurrence: None)
  Receive Date: 20110118
  Receipt Date: 20110106
  Transmission Date: 20110831
  Serious: Yes (Other)
  Sender: FDA-Public Use
  Company Number: PHHY2010NO80629

PATIENT
  Age: 63 Year
  Sex: Male
  Weight: 85 kg

DRUGS (3)
  1. EXFORGE [Suspect]
     Indication: HYPERTENSION
     Dosage: 80 MG OF VALS AND 5 MG OF AMLO
     Dates: start: 20100901
  2. SIMVASTATIN [Concomitant]
     Dosage: 40 MG, UNK
     Dates: start: 20101001
  3. ALBYL-E [Concomitant]
     Dosage: 75 MG, UNK
     Dates: start: 20100901

REACTIONS (7)
  - MYALGIA [None]
  - LOSS OF CONSCIOUSNESS [None]
  - POLLAKIURIA [None]
  - FATIGUE [None]
  - ERECTILE DYSFUNCTION [None]
  - DIZZINESS [None]
  - SLEEP DISORDER [None]
